FAERS Safety Report 8551080-3 (Version None)
Quarter: 2012Q3

REPORT INFORMATION
  Report Type: 
  Country: None (occurrence: None)
  Receive Date: 20120723
  Receipt Date: 20120723
  Transmission Date: 20120928
  Serious: Yes (Disabling)
  Sender: FDA-Public Use
  Company Number: None

PATIENT
  Sex: Male
  Weight: 73.4827 kg

DRUGS (1)
  1. PROSCAR [Suspect]
     Indication: BENIGN PROSTATIC HYPERPLASIA
     Dosage: ONE PILL DAILY PO
     Route: 048
     Dates: start: 20000101, end: 20120202

REACTIONS (4)
  - PEYRONIE'S DISEASE [None]
  - LIBIDO DECREASED [None]
  - SEXUAL DYSFUNCTION [None]
  - EJACULATION DELAYED [None]
